FAERS Safety Report 5065211-3 (Version None)
Quarter: 2006Q3

REPORT INFORMATION
  Report Type: 
  Country: None (occurrence: None)
  Receive Date: 20060725
  Receipt Date: 20060718
  Transmission Date: 20061208
  Serious: Yes (Hospitalization)
  Sender: FDA-Public Use
  Company Number: CAP06000155

PATIENT
  Age: 52 Year
  Sex: Female

DRUGS (2)
  1. ASACOL [Suspect]
     Indication: CROHN'S DISEASE
     Dosage: 800 MG, 3/DAY, ORAL
     Route: 048
     Dates: start: 20051101, end: 20060601
  2. AZATHIOPRINE [Concomitant]

REACTIONS (3)
  - ALOPECIA [None]
  - CONDITION AGGRAVATED [None]
  - CROHN'S DISEASE [None]
